FAERS Safety Report 14856612 (Version 1)
Quarter: 2018Q2

REPORT INFORMATION
  Report Type: Spontaneous
  Country: US (occurrence: US)
  Receive Date: 20180507
  Receipt Date: 20180507
  Transmission Date: 20180711
  Serious: No
  Sender: FDA-Public Use
  Company Number: US-ROCHE-2075993

PATIENT
  Age: 66 Year
  Sex: Male
  Weight: 96.25 kg

DRUGS (2)
  1. ESBRIET [Suspect]
     Active Substance: PIRFENIDONE
     Indication: IDIOPATHIC PULMONARY FIBROSIS
     Dosage: 1 CAPSULE 3 TIMES PER DAY ;ONGOING: NO
     Route: 048
     Dates: start: 201801, end: 20180129
  2. ESBRIET [Suspect]
     Active Substance: PIRFENIDONE
     Dosage: 1 CAPS 3 1 DAY ;ONGOING: YES
     Route: 048
     Dates: start: 20180203

REACTIONS (9)
  - Nausea [Recovered/Resolved]
  - Abdominal discomfort [Not Recovered/Not Resolved]
  - Dizziness [Not Recovered/Not Resolved]
  - Asthenia [Not Recovered/Not Resolved]
  - Blood potassium increased [Unknown]
  - Vomiting projectile [Recovered/Resolved]
  - Pain [Recovered/Resolved]
  - Fatigue [Not Recovered/Not Resolved]
  - Gastrooesophageal reflux disease [Recovering/Resolving]

NARRATIVE: CASE EVENT DATE: 201801
